FAERS Safety Report 26073383 (Version 1)
Quarter: 2025Q4

REPORT INFORMATION
  Report Type: Spontaneous
  Country: US (occurrence: US)
  Receive Date: 20251121
  Receipt Date: 20251121
  Transmission Date: 20260118
  Serious: No
  Sender: OTSUKA
  Company Number: US-MMM-Otsuka-SC150UJR

PATIENT
  Sex: Female

DRUGS (4)
  1. NUEDEXTA [Suspect]
     Active Substance: DEXTROMETHORPHAN HYDROBROMIDE\QUINIDINE SULFATE
     Indication: Intracranial aneurysm
     Dosage: 1 DF (20MG-10MG), QD (ONCE DAILY) FOR 1 WEEK
     Dates: start: 2024
  2. NUEDEXTA [Suspect]
     Active Substance: DEXTROMETHORPHAN HYDROBROMIDE\QUINIDINE SULFATE
     Indication: Emotional disorder
     Dosage: 1 DF (20MG-10MG), BID (TWICE DAILY)
  3. METFORMIN [Concomitant]
     Active Substance: METFORMIN HYDROCHLORIDE
     Indication: Glucose tolerance impaired
     Dosage: UNK
     Route: 065
  4. ASPIRIN [Concomitant]
     Active Substance: ASPIRIN
     Indication: Intracranial aneurysm
     Dosage: UNK
     Route: 065

REACTIONS (1)
  - Product availability issue [Unknown]
